FAERS Safety Report 20024054 (Version 1)
Quarter: 2021Q4

REPORT INFORMATION
  Report Type: Spontaneous
  Country: DE (occurrence: DE)
  Receive Date: 20211102
  Receipt Date: 20211102
  Transmission Date: 20220303
  Serious: Yes (Hospitalization)
  Sender: FDA-Public Use
  Company Number: DE-ADRED-06770-01

PATIENT
  Age: 60 Year
  Sex: Female

DRUGS (9)
  1. PACLITAXEL [Suspect]
     Active Substance: PACLITAXEL
     Indication: Product used for unknown indication
     Dosage: NACH PLAN, INJEKTIONS-/INFUSIONSL?SUNG
     Route: 042
  2. RAMUCIRUMAB [Suspect]
     Active Substance: RAMUCIRUMAB
     Indication: Product used for unknown indication
     Dosage: NACH PLAN, INJEKTIONS-/INFUSIONSL?SUNG
     Route: 042
  3. METAMIZOL                          /06276701/ [Concomitant]
     Dosage: 30 GTT DROPS, Q6H (30 GTT, 1-1-1-1, TROPFEN)
     Route: 048
  4. MCP [Concomitant]
     Active Substance: METOCLOPRAMIDE HYDROCHLORIDE
     Dosage: 10 MG, BIS ZU DREIMAL
     Route: 048
  5. FENTANYL TRANSDERMAL SYSTEM [Concomitant]
     Active Substance: FENTANYL
     Dosage: 25 MICROGRAM, Q3D (25 ?G, ALLE 3 TAGE WECHSE)
     Route: 062
  6. FENTANYL [Concomitant]
     Active Substance: FENTANYL
     Dosage: 0.1 MG, BIS ZU SECHSMAL T?GLIC
     Route: 060
  7. GLYCOPYRRONIUM\INDACATEROL [Concomitant]
     Active Substance: GLYCOPYRRONIUM\INDACATEROL
     Dosage: 1-0-0-0, DOSIERAEROSOL
     Route: 055
  8. ESOMEP                             /01479301/ [Concomitant]
     Dosage: 20 MILLIGRAM, QD (20 MG, 1-0-0-0, TABLETTEN)
     Route: 048
  9. ONDANSETRON [Concomitant]
     Active Substance: ONDANSETRON
     Dosage: 8 MG, BIS ZU ZWEIMAL WENN MCP NICHT AUSREICHEND, SCHMELZTABLETTEN
     Route: 060

REACTIONS (3)
  - Pain [Unknown]
  - Condition aggravated [Unknown]
  - Application site erythema [Unknown]
